FAERS Safety Report 9071741 (Version 1)
Quarter: 2013Q1

REPORT INFORMATION
  Report Type: Report from Study
  Country: FR (occurrence: FR)
  Receive Date: 20130129
  Receipt Date: 20130129
  Transmission Date: 20140127
  Serious: Yes (Hospitalization)
  Sender: FDA-Public Use
  Company Number: FR-BRISTOL-MYERS SQUIBB COMPANY-17323346

PATIENT
  Sex: Female
  Weight: 67 kg

DRUGS (3)
  1. ERBITUX [Suspect]
     Indication: COLON CANCER METASTATIC
     Dates: start: 20100930
  2. IRINOTECAN HCL [Suspect]
     Indication: COLON CANCER METASTATIC
     Dates: start: 20100930
  3. CORTANCYL [Concomitant]
     Dosage: 2 MG DOSE ALSO TAKEN

REACTIONS (6)
  - Musculoskeletal pain [Unknown]
  - Hypokalaemia [Unknown]
  - Diarrhoea [Unknown]
  - Flatulence [Unknown]
  - Vomiting [Unknown]
  - General physical health deterioration [Unknown]
